FAERS Safety Report 5232696-9 (Version None)
Quarter: 2007Q1

REPORT INFORMATION
  Report Type: 
  Country: None (occurrence: None)
  Receive Date: 20070207
  Receipt Date: 20070126
  Transmission Date: 20070707
  Serious: Yes (Hospitalization)
  Sender: FDA-Public Use
  Company Number: 2007AP00724

PATIENT
  Age: 31215 Day
  Sex: Male
  Weight: 55 kg

DRUGS (9)
  1. CASODEX [Suspect]
     Indication: PROSTATE CANCER
     Route: 048
     Dates: start: 20061106
  2. ZOLADEX [Suspect]
     Indication: PROSTATE CANCER
     Route: 058
     Dates: start: 20061127, end: 20061225
  3. HARNAL D [Suspect]
     Route: 048
     Dates: start: 20061014
  4. PANALDINE [Concomitant]
     Indication: CEREBRAL INFARCTION
     Route: 048
     Dates: end: 20061105
  5. PANALDINE [Concomitant]
     Route: 048
     Dates: start: 20061106
  6. NORVASC [Concomitant]
     Indication: HYPERTENSION
     Route: 048
  7. MAGNESIUM OXIDE [Concomitant]
     Route: 048
  8. GASTER D [Concomitant]
     Indication: GASTRIC ULCER
     Route: 048
  9. NU-LOTAN [Concomitant]

REACTIONS (2)
  - MUSCULAR WEAKNESS [None]
  - VOMITING [None]
